FAERS Safety Report 24170207 (Version 1)
Quarter: 2024Q3

REPORT INFORMATION
  Report Type: Spontaneous
  Country: US (occurrence: US)
  Receive Date: 20240803
  Receipt Date: 20240803
  Transmission Date: 20241016
  Serious: Yes (Other)
  Sender: ABBVIE
  Company Number: US-ABBVIE-5860109

PATIENT
  Sex: Female

DRUGS (1)
  1. RINVOQ [Suspect]
     Active Substance: UPADACITINIB
     Indication: Product used for unknown indication
     Route: 048

REACTIONS (6)
  - Haemorrhage [Unknown]
  - Haemoglobin decreased [Unknown]
  - Contusion [Unknown]
  - Crohn^s disease [Unknown]
  - Serum ferritin increased [Unknown]
  - Anaemia [Unknown]
